FAERS Safety Report 4414035-6 (Version None)
Quarter: 2004Q3

REPORT INFORMATION
  Report Type: 
  Country: None (occurrence: None)
  Receive Date: 20040803
  Receipt Date: 20040802
  Transmission Date: 20050211
  Serious: Yes (Hospitalization)
  Sender: FDA-Public Use
  Company Number: US-GLAXOSMITHKLINE-A0520545A

PATIENT
  Age: 67 Year
  Sex: Female

DRUGS (10)
  1. COREG [Suspect]
     Route: 048
     Dates: end: 20040730
  2. INSULIN [Concomitant]
  3. SIMVASTATIN [Concomitant]
  4. PREDNISONE [Concomitant]
  5. PROTONIX [Concomitant]
  6. NEURONTIN [Concomitant]
  7. NORVASC [Concomitant]
  8. LISINOPRIL [Concomitant]
     Dates: end: 20040712
  9. LASIX [Concomitant]
     Dates: end: 20040712
  10. VERAPAMIL [Concomitant]
     Dates: end: 20040712

REACTIONS (7)
  - BLOOD POTASSIUM INCREASED [None]
  - BLOOD PRESSURE DIASTOLIC DECREASED [None]
  - BLOOD PRESSURE SYSTOLIC INCREASED [None]
  - CARDIAC FAILURE CONGESTIVE [None]
  - DYSPNOEA [None]
  - HEART RATE DECREASED [None]
  - RESPIRATORY ARREST [None]
